FAERS Safety Report 5931355-4 (Version None)
Quarter: 2008Q4

REPORT INFORMATION
  Report Type: 
  Country: None (occurrence: None)
  Receive Date: 20081024
  Receipt Date: 20081024
  Transmission Date: 20090506
  Serious: Yes (Other)
  Sender: FDA-Public Use
  Company Number: None

PATIENT
  Sex: Female
  Weight: 58.9676 kg

DRUGS (1)
  1. ZYCAM NASAL SPRAY OTC [Suspect]
     Indication: NASOPHARYNGITIS
     Dosage: 2 SPRAYS ONCE NASAL
     Route: 045
     Dates: start: 20081012, end: 20081012

REACTIONS (3)
  - ANOSMIA [None]
  - APPLICATION SITE IRRITATION [None]
  - DYSGEUSIA [None]
